FAERS Safety Report 18930395 (Version 1)
Quarter: 2021Q1

REPORT INFORMATION
  Report Type: Not Available
  Country: US (occurrence: US)
  Receive Date: 20210224
  Receipt Date: 20210224
  Transmission Date: 20210420
  Serious: No
  Sender: FDA-Public Use
  Company Number: US-NEUROCRINE BIOSCIENCES INC.-2021NBI00689

PATIENT
  Age: 66 Year
  Sex: Female

DRUGS (10)
  1. ZOFRAN [Concomitant]
     Active Substance: ONDANSETRON HYDROCHLORIDE
  2. FIORICET [Concomitant]
     Active Substance: ACETAMINOPHEN\BUTALBITAL\CAFFEINE
  3. INGREZZA [Suspect]
     Active Substance: VALBENAZINE
     Indication: TARDIVE DYSKINESIA
     Dosage: TOTAL DOSE 120 MG
     Route: 048
     Dates: start: 20200205
  4. OMEPRAZOLE. [Concomitant]
     Active Substance: OMEPRAZOLE
  5. SEROQUEL [Concomitant]
     Active Substance: QUETIAPINE FUMARATE
  6. BIOTIN [Concomitant]
     Active Substance: BIOTIN
  7. GABAPENTIN. [Concomitant]
     Active Substance: GABAPENTIN
  8. INGREZZA [Suspect]
     Active Substance: VALBENAZINE
     Dosage: TOTAL DOSE 120 MG
     Route: 048
     Dates: start: 20200205
  9. DULOXETINE. [Concomitant]
     Active Substance: DULOXETINE
  10. SELENIUM [Concomitant]
     Active Substance: SELENIUM

REACTIONS (4)
  - Off label use [Unknown]
  - Fatigue [Not Recovered/Not Resolved]
  - Therapeutic product effect decreased [Unknown]
  - Prescribed overdose [Unknown]
